FAERS Safety Report 5559587-8 (Version None)
Quarter: 2007Q4

REPORT INFORMATION
  Report Type: 
  Country: None (occurrence: None)
  Receive Date: 20071214
  Receipt Date: 20071002
  Transmission Date: 20080405
  Serious: No
  Sender: FDA-Public Use
  Company Number: US-ABBOTT-07P-163-0419684-00

PATIENT
  Sex: Male
  Weight: 72.186 kg

DRUGS (2)
  1. HUMIRA [Suspect]
     Indication: CROHN'S DISEASE
     Dosage: LOADING DOSE
     Route: 058
     Dates: start: 20070701
  2. PREDNISONE [Concomitant]
     Indication: CROHN'S DISEASE
     Dosage: NOT REPORTED
     Route: 048
     Dates: start: 20070915

REACTIONS (1)
  - DRUG INEFFECTIVE [None]
